FAERS Safety Report 11178581 (Version 1)
Quarter: 2015Q2

REPORT INFORMATION
  Report Type: Spontaneous
  Country: US (occurrence: US)
  Receive Date: 20150610
  Receipt Date: 20150610
  Transmission Date: 20150821
  Serious: No
  Sender: FDA-Public Use
  Company Number: US-SHIRE-US201505223

PATIENT
  Age: 10 Year
  Sex: Female

DRUGS (1)
  1. PENTASA [Suspect]
     Active Substance: MESALAMINE
     Indication: PRODUCT USED FOR UNKNOWN INDICATION
     Dosage: UNK, UNKNOWN
     Route: 048

REACTIONS (4)
  - Drug administered to patient of inappropriate age [Unknown]
  - Oral administration complication [Unknown]
  - Wrong technique in drug usage process [Unknown]
  - No adverse event [Unknown]
